FAERS Safety Report 5389634-8 (Version None)
Quarter: 2007Q3

REPORT INFORMATION
  Report Type: 
  Country: None (occurrence: None)
  Receive Date: 20070713
  Receipt Date: 20070705
  Transmission Date: 20080115
  Serious: Yes (Other)
  Sender: FDA-Public Use
  Company Number: 2007SP013362

PATIENT
  Sex: Male

DRUGS (2)
  1. INTERFERON ALFA-2B RECOMBINANT (S-P) (INTERFERON ALFA-2B) [Suspect]
     Indication: HEPATITIS
     Dates: start: 20061201, end: 20070501
  2. PARACETAMOL [Concomitant]

REACTIONS (1)
  - SERUM FERRITIN INCREASED [None]
